FAERS Safety Report 14364829 (Version 3)
Quarter: 2018Q2

REPORT INFORMATION
  Report Type: Spontaneous
  Country: CZ (occurrence: CZ)
  Receive Date: 20180108
  Receipt Date: 20180501
  Transmission Date: 20180711
  Serious: Yes (Other)
  Sender: FDA-Public Use
  Company Number: CZ-BAUSCH-BL-2017-036258

PATIENT
  Age: 22 Year
  Sex: Male

DRUGS (6)
  1. DEXAMETHASONE. [Suspect]
     Active Substance: DEXAMETHASONE
     Indication: BLASTIC PLASMACYTOID DENDRITIC CELL NEOPLASIA
     Dosage: 3 PROPHYLACTIC INTRATHECAL APPLICATIONS OF CHEMOTHERAPY; CYCLICAL
     Route: 037
     Dates: start: 201504
  2. CYCLOPHOSPHAMIDE. [Suspect]
     Active Substance: CYCLOPHOSPHAMIDE
     Indication: BLASTIC PLASMACYTOID DENDRITIC CELL NEOPLASIA
     Dosage: CYCLICAL
     Route: 065
     Dates: start: 201504
  3. CYTARABINE. [Suspect]
     Active Substance: CYTARABINE
     Dosage: INDUCTION CHEMOTHERAPY; CYCLICAL
     Route: 065
     Dates: start: 201504
  4. METHOTREXATE. [Suspect]
     Active Substance: METHOTREXATE
     Indication: BLASTIC PLASMACYTOID DENDRITIC CELL NEOPLASIA
     Dosage: 3 PROPHYLACTIC INTRATHECAL APPLICATIONS OF CHEMOTHERAPY; CYCLICAL
     Route: 037
     Dates: start: 201504
  5. CYTARABINE. [Suspect]
     Active Substance: CYTARABINE
     Indication: BLASTIC PLASMACYTOID DENDRITIC CELL NEOPLASIA
     Dosage: 3 PROPHYLACTIC INTRATHECAL APPLICATIONS OF CHEMOTHERAPY; CYCLICAL
     Route: 037
     Dates: start: 201504
  6. 6-MERCAPTOPURINE [Suspect]
     Active Substance: MERCAPTOPURINE
     Indication: BLASTIC PLASMACYTOID DENDRITIC CELL NEOPLASIA
     Dosage: CYCLICAL
     Route: 065
     Dates: start: 201504

REACTIONS (1)
  - Drug-induced liver injury [Unknown]

NARRATIVE: CASE EVENT DATE: 201504
